FAERS Safety Report 10882065 (Version 1)
Quarter: 2015Q1

REPORT INFORMATION
  Report Type: Spontaneous
  Country: US (occurrence: None)
  Receive Date: 20150226
  Receipt Date: 20150226
  Transmission Date: 20150721
  Serious: Yes (Death)
  Sender: FDA-Public Use
  Company Number: 2753063

PATIENT
  Age: 78 Year
  Sex: Female
  Weight: 35.9 kg

DRUGS (5)
  1. ONDANSETRON [Suspect]
     Active Substance: ONDANSETRON
     Indication: VOMITING
     Dosage: 4 MG MILLIGRAM(S) (AS NECESSARY) INTRAVENOUS (NOT OTHERWIAE SPECIFIED)??1442
     Route: 042
     Dates: start: 20130114, end: 20130213
  2. VERAPAMIL HCL (VERAPAMIL  HYDROCHLORIDE) [Concomitant]
  3. METOPROLOL TARTRTE [Concomitant]
  4. LEVOFLOXACIN. [Concomitant]
     Active Substance: LEVOFLOXACIN
  5. ONDANSETRON [Suspect]
     Active Substance: ONDANSETRON
     Indication: NAUSEA
     Dosage: 4 MG MILLIGRAM(S) (AS NECESSARY) INTRAVENOUS (NOT OTHERWIAE SPECIFIED)??1442
     Route: 042
     Dates: start: 20130114, end: 20130213

REACTIONS (5)
  - White blood cell count increased [None]
  - Drug administration error [None]
  - Sepsis [None]
  - Blood pressure increased [None]
  - Gangrene [None]

NARRATIVE: CASE EVENT DATE: 201301
